FAERS Safety Report 24271694 (Version 1)
Quarter: 2024Q3

REPORT INFORMATION
  Report Type: Spontaneous
  Country: PL (occurrence: PL)
  Receive Date: 20240902
  Receipt Date: 20240902
  Transmission Date: 20241016
  Serious: Yes (Other)
  Sender: ORGANON
  Company Number: None

PATIENT
  Age: 34 Year
  Sex: Female
  Weight: 76 kg

DRUGS (3)
  1. CELESTONE [Suspect]
     Active Substance: BETAMETHASONE
     Indication: Maternal therapy to enhance foetal lung maturity
     Dosage: 3 AMPOULES
     Route: 042
     Dates: start: 20230810, end: 20230810
  2. METHYLDOPA [Concomitant]
     Active Substance: METHYLDOPA
     Indication: Gestational hypertension
     Dosage: 3 X1 TABLET (750MG)
     Route: 048
     Dates: start: 20230809, end: 20230811
  3. ASPIRIN [Concomitant]
     Active Substance: ASPIRIN
     Dosage: 1X2 TABLETS (150MG)
     Route: 048
     Dates: start: 20230809, end: 20230811

REACTIONS (4)
  - Diarrhoea [Unknown]
  - Oedema peripheral [Unknown]
  - Exposure during pregnancy [Unknown]
  - Visual impairment [Unknown]

NARRATIVE: CASE EVENT DATE: 20230810
